FAERS Safety Report 5534579-3 (Version None)
Quarter: 2007Q4

REPORT INFORMATION
  Report Type: 
  Country: None (occurrence: None)
  Receive Date: 20071205
  Receipt Date: 20071127
  Transmission Date: 20080405
  Serious: Yes (Hospitalization)
  Sender: FDA-Public Use
  Company Number: GB-ELI_LILLY_AND_COMPANY-GB200711006506

PATIENT
  Age: 74 Year
  Sex: Female
  Weight: 56.7 kg

DRUGS (9)
  1. DULOXETINE HYDROCHLORIDE [Suspect]
     Indication: DEPRESSION
     Dosage: 30 MG, UNKNOWN
     Route: 048
     Dates: start: 20060620, end: 20060627
  2. AMANTADINE HCL [Concomitant]
  3. AMITRIPTLINE HCL [Concomitant]
  4. APOMORPHINE [Concomitant]
     Indication: PARKINSON'S DISEASE
     Dosage: 6 MG, UNK
     Route: 058
  5. MIRTAZAPINE [Concomitant]
     Dosage: 30 MG, UNK
     Route: 048
     Dates: start: 20060301, end: 20060619
  6. MOVICOL [Concomitant]
  7. STALEVO 100 [Concomitant]
     Dosage: UNK, UNK
     Route: 048
     Dates: start: 20060101
  8. TEMAZEPAM [Concomitant]
  9. VENLAFAXINE HCL [Concomitant]

REACTIONS (2)
  - DEPRESSED LEVEL OF CONSCIOUSNESS [None]
  - UNRESPONSIVE TO STIMULI [None]
